FAERS Safety Report 6785307-5 (Version None)
Quarter: 2010Q2

REPORT INFORMATION
  Report Type: 
  Country: None (occurrence: None)
  Receive Date: 20100623
  Receipt Date: 20100614
  Transmission Date: 20101027
  Serious: Yes (Hospitalization)
  Sender: FDA-Public Use
  Company Number: US-BIOGENIDEC-2010BI019833

PATIENT
  Age: 58 Year
  Sex: Female

DRUGS (2)
  1. TYSABRI [Suspect]
     Indication: MULTIPLE SCLEROSIS
     Route: 042
     Dates: start: 20071022, end: 20080716
  2. TYSABRI [Suspect]
     Route: 042
     Dates: start: 20100329

REACTIONS (4)
  - FALL [None]
  - HIP FRACTURE [None]
  - PYREXIA [None]
  - VOMITING [None]
